FAERS Safety Report 9358755 (Version 2)
Quarter: 2013Q4

REPORT INFORMATION
  Report Type: Spontaneous
  Country: US (occurrence: US)
  Receive Date: 20130620
  Receipt Date: 20131108
  Transmission Date: 20140711
  Serious: Yes (Hospitalization)
  Sender: FDA-Public Use
  Company Number: US-BAYER-2013-076183

PATIENT
  Age: 18 Year
  Sex: Female
  Weight: 58.96 kg

DRUGS (3)
  1. YAZ [Suspect]
     Indication: CONTRACEPTION
     Dosage: UNK
     Dates: start: 2005, end: 200708
  2. MORPHINE [Concomitant]
  3. COMPAZINE [Concomitant]

REACTIONS (11)
  - Renal vein thrombosis [None]
  - Injury [None]
  - Emotional distress [None]
  - Depression [None]
  - Fear of death [None]
  - Nervousness [None]
  - Pain [None]
  - Abdominal pain upper [None]
  - Back pain [None]
  - Nausea [None]
  - Dizziness [None]
